FAERS Safety Report 24576767 (Version 1)
Quarter: 2024Q4

REPORT INFORMATION
  Report Type: Spontaneous
  Country: DE (occurrence: DE)
  Receive Date: 20241104
  Receipt Date: 20241104
  Transmission Date: 20250115
  Serious: Yes (Hospitalization, Other)
  Sender: ORGANON
  Company Number: None

PATIENT
  Age: 25 Year
  Sex: Female

DRUGS (4)
  1. GANIRELIX ACETATE [Suspect]
     Active Substance: GANIRELIX ACETATE
     Indication: Assisted reproductive technology
     Dosage: UNK
  2. FOLLITROPIN DELTA [Suspect]
     Active Substance: FOLLITROPIN DELTA
     Indication: Assisted reproductive technology
     Dosage: UNK
  3. CHORIOGONADOTROPIN ALFA [Suspect]
     Active Substance: CHORIOGONADOTROPIN ALFA
     Indication: Assisted reproductive technology
     Dosage: UNK
  4. PROGESTERONE [Suspect]
     Active Substance: PROGESTERONE
     Indication: Assisted reproductive technology
     Dosage: UNK

REACTIONS (2)
  - Ovarian hyperstimulation syndrome [Recovered/Resolved]
  - Pleural effusion [Recovered/Resolved]

NARRATIVE: CASE EVENT DATE: 20241001
